FAERS Safety Report 24244533 (Version 2)
Quarter: 2024Q3

REPORT INFORMATION
  Report Type: Spontaneous
  Country: US (occurrence: US)
  Receive Date: 20240823
  Receipt Date: 20240829
  Transmission Date: 20241017
  Serious: No
  Sender: BAYER
  Company Number: US-BAYER-2024A118206

PATIENT
  Age: 32 Year

DRUGS (1)
  1. ALEVE PM [Suspect]
     Active Substance: DIPHENHYDRAMINE HYDROCHLORIDE\NAPROXEN SODIUM
     Indication: Somnolence
     Dosage: UNK
     Route: 048
     Dates: start: 20240806, end: 20240816

REACTIONS (3)
  - Drug ineffective [Unknown]
  - Abdominal pain upper [Recovered/Resolved]
  - Product use complaint [Recovered/Resolved]

NARRATIVE: CASE EVENT DATE: 20240810
